FAERS Safety Report 9625648 (Version 1)
Quarter: 2013Q4

REPORT INFORMATION
  Report Type: Report from Study
  Country: BR (occurrence: BR)
  Receive Date: 20131016
  Receipt Date: 20131016
  Transmission Date: 20140711
  Serious: Yes (Other)
  Sender: FDA-Public Use
  Company Number: BR-ROCHE-1289434

PATIENT
  Age: 57 Year
  Sex: Male
  Weight: 89 kg

DRUGS (2)
  1. INTERFERON ALFA-2A [Suspect]
     Indication: CHRONIC HEPATITIS C
     Route: 065
     Dates: start: 20101012
  2. RIBAVIRIN [Suspect]
     Indication: CHRONIC HEPATITIS C
     Route: 065
     Dates: start: 20101012

REACTIONS (1)
  - Hepatitis C [Unknown]
